FAERS Safety Report 4280433-7 (Version None)
Quarter: 2004Q1

REPORT INFORMATION
  Report Type: 
  Country: None (occurrence: None)
  Receive Date: 20040122
  Receipt Date: 20040109
  Transmission Date: 20041129
  Serious: Yes (Life-Threatening)
  Sender: FDA-Public Use
  Company Number: OMPQ-NO-0311S-0888

PATIENT
  Age: 76 Year
  Sex: Female

DRUGS (1)
  1. OMNIPAQUE 140 [Suspect]
     Indication: AORTIC ANEURYSM
     Dosage: 100 ML, SINGLE DOSE, I.V.
     Route: 042
     Dates: start: 20031107, end: 20031107

REACTIONS (2)
  - ACUTE MYOCARDIAL INFARCTION [None]
  - SHOCK [None]
